FAERS Safety Report 7074558-0 (Version None)
Quarter: 2010Q4

REPORT INFORMATION
  Report Type: 
  Country: None (occurrence: None)
  Receive Date: 20101029
  Receipt Date: 20101019
  Transmission Date: 20110411
  Serious: Yes (Death)
  Sender: FDA-Public Use
  Company Number: JP-WATSON-2009-04944

PATIENT
  Age: 72 Year
  Sex: Male

DRUGS (3)
  1. FLUOROURACIL [Suspect]
     Indication: OESOPHAGEAL CARCINOMA
     Dosage: 700 MG/M2 CI DAY 1-5
     Route: 042
     Dates: start: 20001101, end: 20080301
  2. NEDAPLATIN [Suspect]
     Indication: OESOPHAGEAL CARCINOMA
     Dosage: 80 MG/M2 DIV DAY 1
     Dates: start: 20001101, end: 20080301
  3. RADIOTHERAPY [Suspect]
     Indication: OESOPHAGEAL CARCINOMA
     Dosage: 2 GY DAILY

REACTIONS (1)
  - BURKITT'S LEUKAEMIA [None]
